FAERS Safety Report 13910136 (Version 1)
Quarter: 2017Q3

REPORT INFORMATION
  Report Type: Spontaneous
  Country: US (occurrence: None)
  Receive Date: 20170822
  Receipt Date: 20170822
  Transmission Date: 20171127
  Serious: Yes (Life-Threatening, Hospitalization)
  Sender: FDA-Public Use
  Company Number: None

PATIENT
  Age: 72 Year
  Sex: Male
  Weight: 81.65 kg

DRUGS (4)
  1. CITALOPRAM [Concomitant]
     Active Substance: CITALOPRAM HYDROBROMIDE
  2. KEFLEX [Suspect]
     Active Substance: CEPHALEXIN
     Indication: DEVICE RELATED INFECTION
     Route: 048
     Dates: start: 20170803, end: 20170805
  3. VITAMIN C [Concomitant]
     Active Substance: ASCORBIC ACID
  4. STOOL SOFTNERS [Concomitant]

REACTIONS (3)
  - Mouth ulceration [None]
  - Rash generalised [None]
  - Pyrexia [None]

NARRATIVE: CASE EVENT DATE: 20170804
